FAERS Safety Report 7995157-X (Version None)
Quarter: 2011Q4

REPORT INFORMATION
  Report Type: 
  Country: None (occurrence: None)
  Receive Date: 20111220
  Receipt Date: 20111129
  Transmission Date: 20120403
  Serious: Yes (Hospitalization)
  Sender: FDA-Public Use
  Company Number: JP-GLAXOSMITHKLINE-B0766609A

PATIENT
  Sex: Female

DRUGS (11)
  1. PAXIL [Suspect]
     Indication: DEPRESSION
     Dosage: 10MG PER DAY
     Route: 048
     Dates: start: 20030101, end: 20111116
  2. RESTAS [Concomitant]
     Indication: DEPRESSION
     Dosage: 2MG PER DAY
     Route: 048
     Dates: start: 20030101, end: 20111116
  3. HALCION [Concomitant]
     Dosage: .25MG PER DAY
     Route: 048
  4. INDAPAMIDE [Concomitant]
     Dosage: .5MG PER DAY
     Route: 048
  5. ACLATONIUM NAPADISYLATE [Concomitant]
     Dosage: 150MG PER DAY
     Route: 048
  6. LAC B [Concomitant]
     Route: 048
  7. COMELIAN [Concomitant]
     Dosage: 150MG PER DAY
     Route: 048
  8. ENALAPRIL MALEATE [Concomitant]
     Dosage: 2.5MG PER DAY
     Route: 048
  9. METILDIGOXIN [Concomitant]
     Indication: ATRIAL FIBRILLATION
     Dosage: .05MG PER DAY
     Route: 048
  10. IMIDAFENACIN [Concomitant]
     Dosage: .2MG PER DAY
     Route: 048
  11. ENOXOLONE [Concomitant]
     Route: 061

REACTIONS (27)
  - PNEUMONIA ASPIRATION [None]
  - C-REACTIVE PROTEIN INCREASED [None]
  - PYREXIA [None]
  - ELECTROCARDIOGRAM ST-T SEGMENT ABNORMAL [None]
  - COORDINATION ABNORMAL [None]
  - STUPOR [None]
  - LYMPHOCYTE PERCENTAGE DECREASED [None]
  - LOSS OF CONSCIOUSNESS [None]
  - NEUROLEPTIC MALIGNANT SYNDROME [None]
  - ALTERED STATE OF CONSCIOUSNESS [None]
  - LUNG INFILTRATION [None]
  - TACHYCARDIA [None]
  - GLOMERULAR FILTRATION RATE DECREASED [None]
  - MENINGIOMA [None]
  - ATRIAL FIBRILLATION [None]
  - WHITE BLOOD CELL COUNT INCREASED [None]
  - NEUTROPHIL PERCENTAGE INCREASED [None]
  - BLOOD UREA INCREASED [None]
  - BLOOD CREATINE INCREASED [None]
  - HAEMATOCRIT DECREASED [None]
  - MARASMUS [None]
  - HYPERTONIC BLADDER [None]
  - BLOOD CREATINE PHOSPHOKINASE INCREASED [None]
  - ELECTROCARDIOGRAM Q WAVE ABNORMAL [None]
  - MONOCYTE PERCENTAGE ABNORMAL [None]
  - BLOOD GLUCOSE INCREASED [None]
  - HAEMOGLOBIN DECREASED [None]
